FAERS Safety Report 6527578-6 (Version None)
Quarter: 2010Q1

REPORT INFORMATION
  Report Type: 
  Country: None (occurrence: None)
  Receive Date: 20100105
  Receipt Date: 20091224
  Transmission Date: 20100710
  Serious: Yes (Hospitalization)
  Sender: FDA-Public Use
  Company Number: PHHY2009JP52134

PATIENT
  Sex: Male

DRUGS (1)
  1. TEGRETOL [Suspect]
     Indication: PARTIAL SEIZURES
     Dosage: UNK
     Route: 048
     Dates: start: 20070424, end: 20070518

REACTIONS (7)
  - ABDOMINAL PAIN [None]
  - DRUG RASH WITH EOSINOPHILIA AND SYSTEMIC SYMPTOMS [None]
  - ERYTHEMA [None]
  - HUMAN HERPESVIRUS 6 INFECTION [None]
  - LIVER DISORDER [None]
  - PYREXIA [None]
  - RASH [None]
